FAERS Safety Report 21189958 (Version 3)
Quarter: 2022Q4

REPORT INFORMATION
  Report Type: Spontaneous
  Country: US (occurrence: US)
  Receive Date: 20220809
  Receipt Date: 20221013
  Transmission Date: 20230113
  Serious: Yes (Other)
  Sender: FDA-Public Use
  Company Number: US-GLAXOSMITHKLINE-US2022096892

PATIENT

DRUGS (4)
  1. ZEJULA [Suspect]
     Active Substance: NIRAPARIB
     Indication: Fallopian tube cancer
     Dosage: 300 MG, QD
     Dates: start: 20220609
  2. ZEJULA [Suspect]
     Active Substance: NIRAPARIB
     Dosage: 300 MG, QD
     Dates: start: 202206
  3. ZEJULA [Suspect]
     Active Substance: NIRAPARIB
     Dosage: 200 MG
  4. ZEJULA [Suspect]
     Active Substance: NIRAPARIB
     Dosage: 100 MG, QD
     Route: 048

REACTIONS (11)
  - Pulmonary thrombosis [Unknown]
  - Nausea [Unknown]
  - Constipation [Unknown]
  - Dyspnoea [Unknown]
  - Platelet count decreased [Unknown]
  - Asthenia [Unknown]
  - Choking sensation [Unknown]
  - Pharyngeal swelling [Unknown]
  - Haemoglobin decreased [Not Recovered/Not Resolved]
  - Blood iron decreased [Unknown]
  - Blood disorder [Unknown]

NARRATIVE: CASE EVENT DATE: 20220601
